FAERS Safety Report 20897787 (Version 1)
Quarter: 2022Q2

REPORT INFORMATION
  Report Type: Spontaneous
  Country: US (occurrence: US)
  Receive Date: 20220531
  Receipt Date: 20220531
  Transmission Date: 20220720
  Serious: No
  Sender: FDA-Public Use
  Company Number: US-GILEAD-2022-0582738

PATIENT
  Sex: Male

DRUGS (7)
  1. EPCLUSA [Suspect]
     Active Substance: SOFOSBUVIR\VELPATASVIR
     Indication: Chronic hepatitis C
     Dosage: 1 DOSAGE FORM, QD
     Route: 048
     Dates: start: 20220501
  2. ALEVE [Concomitant]
     Active Substance: NAPROXEN SODIUM
  3. ATORVASTATIN [Concomitant]
     Active Substance: ATORVASTATIN
  4. HYDROCHLOROTHIAZIDE [Concomitant]
     Active Substance: HYDROCHLOROTHIAZIDE
  5. NEBIVOLOL [Concomitant]
     Active Substance: NEBIVOLOL
  6. PREDNISONE [Concomitant]
     Active Substance: PREDNISONE
  7. MULTIVIT [VITAMINS NOS] [Concomitant]

REACTIONS (1)
  - Sleep disorder [Recovered/Resolved]
